FAERS Safety Report 6509492-5 (Version None)
Quarter: 2009Q4

REPORT INFORMATION
  Report Type: 
  Country: None (occurrence: None)
  Receive Date: 20091222
  Receipt Date: 20091216
  Transmission Date: 20100525
  Serious: Yes (Other)
  Sender: FDA-Public Use
  Company Number: IT-AMGEN-UK373924

PATIENT
  Sex: Female
  Weight: 75 kg

DRUGS (6)
  1. ARANESP [Suspect]
     Indication: DIALYSIS
     Route: 042
     Dates: start: 20020301
  2. EPOGEN [Suspect]
     Route: 042
     Dates: start: 20000101
  3. IRON [Concomitant]
  4. FOLIC ACID [Concomitant]
  5. DEPAKENE [Concomitant]
  6. VALPROIC ACID [Concomitant]
     Route: 065
     Dates: start: 19990801

REACTIONS (1)
  - ANAEMIA [None]
